FAERS Safety Report 14570600 (Version 1)
Quarter: 2018Q1

REPORT INFORMATION
  Report Type: Spontaneous
  Country: DE (occurrence: DE)
  Receive Date: 20180226
  Receipt Date: 20180226
  Transmission Date: 20180509
  Serious: Yes (Other)
  Sender: FDA-Public Use
  Company Number: DE-CONCORDIA PHARMACEUTICALS INC.-E2B_00010099

PATIENT
  Age: 28 Year
  Sex: Male

DRUGS (2)
  1. NATALIZUMAB [Suspect]
     Active Substance: NATALIZUMAB
     Indication: MULTIPLE SCLEROSIS
     Dosage: DAILY DOSE: 300 MG MILLGRAM(S) EVERY MONTHS
     Route: 042
     Dates: start: 201608
  2. PREDNISOLONE. [Suspect]
     Active Substance: PREDNISOLONE
     Dates: start: 201606

REACTIONS (1)
  - Osteonecrosis [Not Recovered/Not Resolved]

NARRATIVE: CASE EVENT DATE: 201706
